FAERS Safety Report 16156479 (Version 1)
Quarter: 2019Q2

REPORT INFORMATION
  Report Type: Report from Study
  Country: IL (occurrence: IL)
  Receive Date: 20190404
  Receipt Date: 20190404
  Transmission Date: 20190711
  Serious: Yes (Other)
  Sender: FDA-Public Use
  Company Number: IL-ACCORD-117400

PATIENT
  Age: 7 Year
  Sex: Male

DRUGS (6)
  1. DEFIBROTIDE [Suspect]
     Active Substance: DEFIBROTIDE (BOVINE)
     Indication: PROPHYLAXIS AGAINST GRAFT VERSUS HOST DISEASE
  2. THIOTEPA. [Suspect]
     Active Substance: THIOTEPA
     Indication: BONE MARROW CONDITIONING REGIMEN
  3. MYCOPHENOLIC ACID. [Suspect]
     Active Substance: MYCOPHENOLIC ACID
     Indication: PROPHYLAXIS AGAINST GRAFT VERSUS HOST DISEASE
  4. CICLOSPORIN [Suspect]
     Active Substance: CYCLOSPORINE
     Indication: PROPHYLAXIS AGAINST GRAFT VERSUS HOST DISEASE
  5. TREOSULFAN [Suspect]
     Active Substance: TREOSULFAN
     Indication: BONE MARROW CONDITIONING REGIMEN
  6. FLUDARABINE [Suspect]
     Active Substance: FLUDARABINE PHOSPHATE
     Indication: BONE MARROW CONDITIONING REGIMEN

REACTIONS (1)
  - Bacteraemia [Recovered/Resolved]
